FAERS Safety Report 5058254-7 (Version None)
Quarter: 2006Q2

REPORT INFORMATION
  Report Type: 
  Country: None (occurrence: None)
  Receive Date: 20060622
  Receipt Date: 20060213
  Transmission Date: 20061013
  Serious: Yes (Hospitalization)
  Sender: FDA-Public Use
  Company Number: US-JNJFOC-20060204536

PATIENT
  Age: 38 Year
  Sex: Female
  Weight: 84.8226 kg

DRUGS (2)
  1. DURAGESIC-100 [Suspect]
     Indication: PAIN
     Dosage: 50 UG/HR, 1 IN 72 HOUR TRANSDERMAL
     Route: 062
     Dates: start: 20051001
  2. GEODON (ZIPRASIDONE HYDROCHLORIDE) TABLET [Concomitant]
     Indication: MOOD SWINGS
     Dosage: 30 MG 1 IN 24 HOUR ORAL
     Route: 048
     Dates: end: 20060101

REACTIONS (2)
  - DIZZINESS [None]
  - PALPITATIONS [None]
